FAERS Safety Report 19043357 (Version 1)
Quarter: 2021Q1

REPORT INFORMATION
  Report Type: Spontaneous
  Country: US (occurrence: US)
  Receive Date: 20210322
  Receipt Date: 20210322
  Transmission Date: 20210420
  Serious: Yes (Hospitalization)
  Sender: FDA-Public Use
  Company Number: None

PATIENT
  Age: 59 Year
  Sex: Female

DRUGS (12)
  1. CLONAZEPAM. [Concomitant]
     Active Substance: CLONAZEPAM
  2. TIZANIDINE. [Concomitant]
     Active Substance: TIZANIDINE
  3. METOCLOPRAM [Concomitant]
     Active Substance: METOCLOPRAMIDE
  4. COPAXONE [Suspect]
     Active Substance: GLATIRAMER ACETATE
     Indication: MULTIPLE SCLEROSIS
     Route: 058
     Dates: start: 20170718
  5. MODERNA COVID?19 VACCINE [Suspect]
     Active Substance: CX-024414
  6. ZOLPIDEM [Concomitant]
     Active Substance: ZOLPIDEM TARTRATE
  7. ENOXAPARIN [Concomitant]
     Active Substance: ENOXAPARIN
  8. SOLIFENACIN [Concomitant]
     Active Substance: SOLIFENACIN
  9. ACETAMIN [Concomitant]
     Active Substance: ACETAMINOPHEN
  10. GABAPENT IN [Concomitant]
  11. DOK [Concomitant]
     Active Substance: DOCUSATE SODIUM
  12. OXYCODONE [Concomitant]
     Active Substance: OXYCODONE

REACTIONS (5)
  - Dyspnoea [None]
  - Chills [None]
  - Lower limb fracture [None]
  - Tremor [None]
  - Influenza like illness [None]
